FAERS Safety Report 5583942-3 (Version None)
Quarter: 2008Q1

REPORT INFORMATION
  Report Type: 
  Country: None (occurrence: None)
  Receive Date: 20080108
  Receipt Date: 20080103
  Transmission Date: 20080703
  Serious: Yes (Hospitalization, Other)
  Sender: FDA-Public Use
  Company Number: US-ELI_LILLY_AND_COMPANY-US200707007068

PATIENT

DRUGS (10)
  1. ZYPREXA [Suspect]
     Indication: OBSESSIVE-COMPULSIVE DISORDER
     Dosage: 7.5 MG, DAILY (1/D)
     Route: 064
     Dates: start: 20061207
  2. ZYPREXA [Suspect]
     Dosage: 10 MG, DAILY (1/D)
     Route: 064
  3. ZYPREXA [Suspect]
     Dosage: 15 MG, DAILY (1/D)
     Route: 064
  4. ZYPREXA [Suspect]
     Dosage: 20 MG, DAILY (1/D)
     Route: 064
     Dates: start: 20070101, end: 20070709
  5. ZYPREXA ZYDIS [Suspect]
     Indication: OBSESSIVE-COMPULSIVE DISORDER
  6. PAXIL CR [Concomitant]
     Indication: OBSESSIVE-COMPULSIVE DISORDER
     Dosage: 75 MG, DAILY (1/D)
     Route: 064
  7. BENZODIAZEPINE DERIVATIVES [Concomitant]
     Route: 064
  8. PAXIL [Concomitant]
     Indication: OBSESSIVE-COMPULSIVE DISORDER
     Dosage: 60 MG, DAILY (1/D)
  9. FLUOXETINE HYDROCHLORIDE [Concomitant]
     Indication: OBSESSIVE-COMPULSIVE DISORDER
     Dosage: 100 MG, DAILY (1/D)
     Dates: start: 20061114, end: 20071109
  10. ATIVAN [Concomitant]
     Indication: OBSESSIVE-COMPULSIVE DISORDER
     Dosage: 0.5 MG, AS NEEDED
     Dates: start: 20070101

REACTIONS (4)
  - APGAR SCORE LOW [None]
  - DRUG EXPOSURE DURING PREGNANCY [None]
  - DYSTONIA [None]
  - HYPOREFLEXIA [None]
